FAERS Safety Report 8064641-5 (Version None)
Quarter: 2012Q1

REPORT INFORMATION
  Report Type: 
  Country: None (occurrence: None)
  Receive Date: 20120123
  Receipt Date: 20120112
  Transmission Date: 20120608
  Serious: Yes (Hospitalization)
  Sender: FDA-Public Use
  Company Number: JP-ASTRAZENECA-2012SE03794

PATIENT
  Age: 41 Year
  Sex: Male

DRUGS (5)
  1. ZYPREXA [Concomitant]
  2. TRIHEXYPHENIDYL HCL [Concomitant]
  3. RISPERDAL [Concomitant]
  4. SEROQUEL [Suspect]
     Route: 048
  5. ABILIFY [Suspect]

REACTIONS (1)
  - PHARYNGEAL OEDEMA [None]
